FAERS Safety Report 20140737 (Version 1)
Quarter: 2021Q4

REPORT INFORMATION
  Report Type: Report from Study
  Country: BR (occurrence: BR)
  Receive Date: 20211202
  Receipt Date: 20211202
  Transmission Date: 20220303
  Serious: Yes (Hospitalization, Other)
  Sender: FDA-Public Use
  Company Number: BR-NOVARTISPH-NVSC2020BR194948

PATIENT
  Age: 75 Year
  Sex: Female
  Weight: 53 kg

DRUGS (2)
  1. TIMOLOL MALEATE\TRAVOPROST [Suspect]
     Active Substance: TIMOLOL MALEATE\TRAVOPROST
     Indication: Visual impairment
     Dosage: UNK, STARTED 3-4 YEARS AGO (ONE DROP TO EACH EYE)
     Route: 065
     Dates: end: 202005
  2. TIMOLOL MALEATE\TRAVOPROST [Suspect]
     Active Substance: TIMOLOL MALEATE\TRAVOPROST
     Indication: Glaucoma

REACTIONS (10)
  - Coma [Recovered/Resolved]
  - Glaucoma [Unknown]
  - Intraocular pressure increased [Not Recovered/Not Resolved]
  - Syncope [Unknown]
  - Blood sodium decreased [Recovered/Resolved]
  - Hypertension [Unknown]
  - Memory impairment [Not Recovered/Not Resolved]
  - Drug ineffective [Unknown]
  - Malaise [Unknown]
  - Dry eye [Unknown]

NARRATIVE: CASE EVENT DATE: 20191103
